FAERS Safety Report 13346710 (Version 3)
Quarter: 2022Q2

REPORT INFORMATION
  Report Type: Spontaneous
  Country: FR (occurrence: FR)
  Receive Date: 20170317
  Receipt Date: 20220420
  Transmission Date: 20220721
  Serious: Yes (Death, Other)
  Sender: FDA-Public Use
  Company Number: FR-MYLANLABS-2017M1016718

PATIENT
  Age: 34 Year
  Sex: Male

DRUGS (11)
  1. QUETIAPINE [Suspect]
     Active Substance: QUETIAPINE
     Indication: Agitation
     Dosage: UNK; PROLONGED ADMINISTRATION AT 600 MG PER DAY
     Route: 065
     Dates: start: 20120605
  2. LOXAPINE [Suspect]
     Active Substance: LOXAPINE
     Indication: Agitation
     Dosage: 275 MG, QD (+100 MG IF NEEDED)
     Route: 048
     Dates: start: 20120614
  3. LOXAPINE [Suspect]
     Active Substance: LOXAPINE
     Dosage: UNK; 100 MG
     Route: 030
     Dates: start: 20120625
  4. TROPATEPINE [Concomitant]
     Active Substance: TROPATEPINE
     Indication: Agitation
     Dosage: 10 MG, QD
     Route: 065
  5. DIAZEPAM [Concomitant]
     Active Substance: DIAZEPAM
     Indication: Product used for unknown indication
     Dosage: 30 MILLIGRAM, QD; 30 MG/DAY
     Route: 065
  6. VALPROIC ACID [Concomitant]
     Active Substance: VALPROIC ACID
     Indication: Product used for unknown indication
     Dosage: 1000 MILLIGRAM, QD; 1000 MG/DAY
     Route: 065
  7. ACETAMINOPHEN [Concomitant]
     Active Substance: ACETAMINOPHEN
     Indication: Product used for unknown indication
     Dosage: 1 GRAM
     Route: 042
  8. PHLOROGLUCINOL [Concomitant]
     Active Substance: PHLOROGLUCINOL
     Indication: Product used for unknown indication
     Dosage: 80 MILLIGRAM
     Route: 042
  9. TRAMADOL [Concomitant]
     Active Substance: TRAMADOL
     Indication: Product used for unknown indication
     Dosage: 100 MILLIGRAM
     Route: 042
  10. MORPHINE [Concomitant]
     Active Substance: MORPHINE
     Indication: Product used for unknown indication
     Dosage: UNK
     Route: 042
  11. PIPERACILLIN AND TAZOBACTAM [Concomitant]
     Active Substance: PIPERACILLIN SODIUM\TAZOBACTAM SODIUM
     Indication: Antibiotic therapy
     Dosage: UNK
     Route: 065

REACTIONS (12)
  - Necrotising colitis [Fatal]
  - Intestinal ischaemia [Fatal]
  - Large intestine perforation [Fatal]
  - Metabolic acidosis [Fatal]
  - Hepatic enzyme increased [Fatal]
  - Multiple organ dysfunction syndrome [Fatal]
  - Sepsis [Fatal]
  - Haemorrhage [Fatal]
  - Cardiac arrest [Fatal]
  - Staphylococcal bacteraemia [Fatal]
  - Candida infection [Fatal]
  - Pneumonia pseudomonal [Fatal]
